FAERS Safety Report 10171866 (Version 3)
Quarter: 2014Q3

REPORT INFORMATION
  Report Type: Spontaneous
  Country: US (occurrence: None)
  Receive Date: 20140512
  Receipt Date: 20140916
  Transmission Date: 20150326
  Serious: Yes (Death)
  Sender: FDA-Public Use
  Company Number: UTC-048359

PATIENT
  Age: 60 Year
  Sex: Female
  Weight: 56.7 kg

DRUGS (3)
  1. WARFARIN [Concomitant]
     Active Substance: WARFARIN
  2. REMODULIN [Suspect]
     Active Substance: TREPROSTINIL
     Indication: PULMONARY ARTERIAL HYPERTENSION
     Dosage: 83.52 UG/KG (0.058 UG/KG, 1 IN 1 MIN) SUBCUTANEOUS
     Route: 058
     Dates: start: 20140730
  3. REVATIO (SILDENAFIL CITRATE) [Concomitant]

REACTIONS (2)
  - Death [None]
  - Cardiac arrest [None]

NARRATIVE: CASE EVENT DATE: 20140427
